FAERS Safety Report 9819144 (Version 1)
Quarter: 2014Q1

REPORT INFORMATION
  Report Type: Spontaneous
  Country: US (occurrence: US)
  Receive Date: 20140115
  Receipt Date: 20140115
  Transmission Date: 20141002
  Serious: No
  Sender: FDA-Public Use
  Company Number: US-ENDO PHARMACEUTICALS INC.-PERC20130163

PATIENT
  Age: 42 Year
  Sex: Female
  Weight: 160.72 kg

DRUGS (1)
  1. PERCOCET [Suspect]
     Indication: PRODUCT USED FOR UNKNOWN INDICATION
     Dosage: UNK
     Route: 048
     Dates: start: 200808

REACTIONS (1)
  - Drug hypersensitivity [Not Recovered/Not Resolved]
